FAERS Safety Report 24822404 (Version 1)
Quarter: 2025Q1

REPORT INFORMATION
  Report Type: Spontaneous
  Country: US (occurrence: US)
  Receive Date: 20250108
  Receipt Date: 20250108
  Transmission Date: 20250409
  Serious: No
  Sender: APOTEX
  Company Number: US-APOTEX-2024AP020287

PATIENT
  Age: 10 Year
  Sex: Male

DRUGS (2)
  1. FLUTICASONE [Suspect]
     Active Substance: FLUTICASONE
     Indication: Rhinitis
     Route: 065
  2. CETIRIZINE [Concomitant]
     Active Substance: CETIRIZINE HYDROCHLORIDE
     Indication: Rhinitis
     Route: 065

REACTIONS (2)
  - Wrong technique in product usage process [Unknown]
  - Epistaxis [Unknown]
